FAERS Safety Report 11661295 (Version 2)
Quarter: 2015Q4

REPORT INFORMATION
  Report Type: Other
  Country: US (occurrence: US)
  Receive Date: 20151026
  Receipt Date: 20151201
  Transmission Date: 20160304
  Serious: Yes (Hospitalization)
  Sender: FDA-Public Use
  Company Number: US-B. BRAUN MEDICAL INC.-1043389

PATIENT
  Age: 32 Year
  Sex: Female

DRUGS (1)
  1. 1.5% GLYCINE IRRIGATION USP 0264-7390-60 [Suspect]
     Active Substance: GLYCINE
     Route: 042

REACTIONS (11)
  - Hypothermia [None]
  - Hyponatraemia [None]
  - Blood lactic acid increased [None]
  - Bradycardia [None]
  - Hypocalcaemia [None]
  - Blood osmolarity decreased [None]
  - Hypotension [None]
  - Medication error [None]
  - Brain oedema [None]
  - Ammonia increased [None]
  - Hypomagnesaemia [None]
